FAERS Safety Report 9507250 (Version 2)
Quarter: 2013Q3

REPORT INFORMATION
  Report Type: Report from Study
  Country: CA (occurrence: CA)
  Receive Date: 20130909
  Receipt Date: 20130909
  Transmission Date: 20140515
  Serious: Yes (Death, Hospitalization)
  Sender: FDA-Public Use
  Company Number: PHHY2013CA023304

PATIENT
  Age: 53 Year
  Sex: Female

DRUGS (9)
  1. SANDOSTATIN LAR [Suspect]
     Indication: NEUROENDOCRINE TUMOUR
     Dosage: 30 MG, EVERY 4 WEEKS
     Route: 030
     Dates: start: 20130302
  2. SANDOSTATIN LAR [Suspect]
     Dosage: 60 MG, BIW
     Route: 030
  3. GRAVOL [Concomitant]
     Dosage: UNK UKN, UNK
  4. MORPHINE [Concomitant]
     Dosage: 6 MG, UNK
  5. MORPHINE [Concomitant]
     Dosage: 9 MG, BID
  6. MORPHINE [Concomitant]
     Dosage: 2 MG, UNK
  7. MORPHINE [Concomitant]
     Dosage: 3 MG, UNK
  8. MORPHINE [Concomitant]
     Dosage: 9 MG, TID
  9. TRIAZIDE                           /00081101/ [Concomitant]
     Dosage: 0.5 DF, QW

REACTIONS (13)
  - Death [Fatal]
  - Pain [Unknown]
  - Constipation [Unknown]
  - Weight decreased [Unknown]
  - Sleep disorder [Unknown]
  - Local swelling [Unknown]
  - Tearfulness [Unknown]
  - Flushing [Unknown]
  - Fluid retention [Unknown]
  - Diarrhoea [Unknown]
  - Nausea [Unknown]
  - Abdominal pain [Unknown]
  - Decreased appetite [Unknown]
